FAERS Safety Report 4772372-X (Version None)
Quarter: 2005Q3

REPORT INFORMATION
  Report Type: 
  Country: None (occurrence: None)
  Receive Date: 20050919
  Receipt Date: 20041217
  Transmission Date: 20060218
  Serious: No
  Sender: FDA-Public Use
  Company Number: US-BRISTOL-MYERS SQUIBB COMPANY-12799441

PATIENT
  Age: 77 Year
  Sex: Male
  Weight: 79 kg

DRUGS (4)
  1. KENALOG-40 [Suspect]
     Indication: SPINAL COLUMN STENOSIS
     Dates: start: 20040601, end: 20050501
  2. PRILOSEC [Concomitant]
  3. LIPITOR [Concomitant]
  4. ZOCOR [Concomitant]

REACTIONS (1)
  - FLUSHING [None]
